FAERS Safety Report 9009976 (Version 1)
Quarter: 2013Q1

REPORT INFORMATION
  Report Type: Spontaneous
  Country: DE (occurrence: DE)
  Receive Date: 20130110
  Receipt Date: 20130110
  Transmission Date: 20140127
  Serious: Yes (Death, Life-Threatening, Hospitalization, Congenital Anomaly, Other)
  Sender: FDA-Public Use
  Company Number: DE-UCBSA-074171

PATIENT
  Age: 1 Day
  Sex: Male
  Weight: 1.5 kg

DRUGS (4)
  1. VIMPAT [Suspect]
     Indication: EPILEPSY
     Route: 064
     Dates: start: 20110701, end: 20120114
  2. FINLEPSIN [Suspect]
     Indication: EPILEPSY
     Route: 064
     Dates: start: 20110701, end: 20120114
  3. FEMIBION [Concomitant]
     Indication: PROPHYLAXIS OF NEURAL TUBE DEFECT
     Route: 064
     Dates: start: 201108, end: 20120114
  4. CELESTAN [Concomitant]
     Indication: MATERNAL THERAPY TO ENHANCE FOETAL LUNG MATURITY
     Route: 064
     Dates: start: 20120113, end: 20120113

REACTIONS (11)
  - Pulmonary haemorrhage [Fatal]
  - Neonatal cardiac failure [Fatal]
  - Acute hepatic failure [Fatal]
  - Arteriovenous malformation [Fatal]
  - Patent ductus arteriosus [Not Recovered/Not Resolved]
  - Atrial septal defect [Not Recovered/Not Resolved]
  - Foetal heart rate deceleration [Unknown]
  - Cardiomegaly [Not Recovered/Not Resolved]
  - Atrial septal defect [Not Recovered/Not Resolved]
  - Premature baby [Unknown]
  - Foetal exposure during pregnancy [Recovered/Resolved]
